FAERS Safety Report 5856563-2 (Version None)
Quarter: 2008Q3

REPORT INFORMATION
  Report Type: 
  Country: None (occurrence: None)
  Receive Date: 20080822
  Receipt Date: 20080822
  Transmission Date: 20090109
  Serious: No
  Sender: FDA-Public Use
  Company Number: None

PATIENT
  Sex: Female
  Weight: 47.1741 kg

DRUGS (1)
  1. BONIVA [Suspect]
     Indication: OSTEOPOROSIS
     Dosage: 150 MG ONCE MONTH
     Dates: start: 20050101

REACTIONS (4)
  - ARTHRITIS [None]
  - PAIN [None]
  - PAIN IN JAW [None]
  - TOOTHACHE [None]
